FAERS Safety Report 21629722 (Version 1)
Quarter: 2022Q4

REPORT INFORMATION
  Report Type: Report from Study
  Country: US (occurrence: US)
  Receive Date: 20221122
  Receipt Date: 20221122
  Transmission Date: 20230113
  Serious: No
  Sender: FDA-Public Use
  Company Number: US-ABBVIE-22K-163-4462455-00

PATIENT
  Sex: Female

DRUGS (4)
  1. HUMIRA [Suspect]
     Active Substance: ADALIMUMAB
     Indication: Hidradenitis
     Dosage: TIME INTERVAL: 1 TOTAL: LOADING DOSE?DAY 1
     Route: 058
     Dates: start: 20211227, end: 20211227
  2. HUMIRA [Suspect]
     Active Substance: ADALIMUMAB
     Dosage: LOADING DOSE?DAY 15?DRUG END DATE JUN 2022
     Route: 058
     Dates: start: 20220111, end: 20220111
  3. HUMIRA [Suspect]
     Active Substance: ADALIMUMAB
     Dosage: DAY 29
     Route: 058
     Dates: start: 20220125, end: 20220621
  4. HUMIRA [Suspect]
     Active Substance: ADALIMUMAB
     Route: 058
     Dates: start: 202206, end: 202208

REACTIONS (12)
  - Urticaria [Unknown]
  - Skin striae [Unknown]
  - Feeling hot [Unknown]
  - Self-consciousness [Unknown]
  - Night sweats [Not Recovered/Not Resolved]
  - Pruritus [Unknown]
  - Rash macular [Unknown]
  - Sinusitis [Not Recovered/Not Resolved]
  - Pain of skin [Unknown]
  - Unevaluable event [Unknown]
  - Asthenia [Unknown]
  - Hypersensitivity [Unknown]

NARRATIVE: CASE EVENT DATE: 20220101
